FAERS Safety Report 10688383 (Version 5)
Quarter: 2015Q1

REPORT INFORMATION
  Report Type: Spontaneous
  Country: NO (occurrence: NO)
  Receive Date: 20150102
  Receipt Date: 20150302
  Transmission Date: 20150720
  Serious: Yes (Hospitalization, Disabling, Other)
  Sender: FDA-Public Use
  Company Number: NO-ABBVIE-14K-122-1326565-00

PATIENT
  Age: 60 Year
  Sex: Male

DRUGS (2)
  1. HUMIRA [Suspect]
     Active Substance: ADALIMUMAB
     Indication: CROHN^S DISEASE
     Route: 058
     Dates: start: 2012, end: 20140528
  2. ALLOPUR [Concomitant]
     Active Substance: ALLOPURINOL
     Indication: GOUT
     Route: 048

REACTIONS (18)
  - Iridocyclitis [Unknown]
  - Corneal disorder [Unknown]
  - Ophthalmic herpes zoster [Not Recovered/Not Resolved]
  - Blindness unilateral [Unknown]
  - Retinal haemorrhage [Unknown]
  - Optic disc haemorrhage [Unknown]
  - Retinal vascular occlusion [Unknown]
  - Purulent discharge [Not Recovered/Not Resolved]
  - Retinal detachment [Not Recovered/Not Resolved]
  - Necrotising herpetic retinopathy [Unknown]
  - Retinal vascular occlusion [Unknown]
  - Haemorrhagic vasculitis [Unknown]
  - Vision blurred [Unknown]
  - Retinal degeneration [Unknown]
  - Eye haemorrhage [Unknown]
  - Blindness [Unknown]
  - Eye ulcer [Unknown]
  - Hypotonia [Unknown]

NARRATIVE: CASE EVENT DATE: 2014
